FAERS Safety Report 6603421-1 (Version None)
Quarter: 2010Q1

REPORT INFORMATION
  Report Type: 
  Country: None (occurrence: None)
  Receive Date: 20100226
  Receipt Date: 20090811
  Transmission Date: 20100710
  Serious: No
  Sender: FDA-Public Use
  Company Number: A0782622A

PATIENT
  Sex: Male

DRUGS (1)
  1. VALTREX [Suspect]
     Dosage: 500MG PER DAY
     Dates: start: 20080101

REACTIONS (3)
  - EYE PAIN [None]
  - HERPES VIRUS INFECTION [None]
  - LACRIMATION INCREASED [None]
